FAERS Safety Report 21814646 (Version 1)
Quarter: 2023Q1

REPORT INFORMATION
  Report Type: Spontaneous
  Country: BE (occurrence: BE)
  Receive Date: 20230104
  Receipt Date: 20230104
  Transmission Date: 20230417
  Serious: Yes (Hospitalization, Other)
  Sender: FDA-Public Use
  Company Number: None

PATIENT
  Age: 79 Year
  Sex: Female

DRUGS (2)
  1. EYLEA [Suspect]
     Active Substance: AFLIBERCEPT
     Indication: Maculopathy
     Dosage: UNK, SOLUTION FOR INJECTION (STRENGTH: 40 MG/ML)
     Route: 031
     Dates: start: 20210308
  2. POVIDONE-IODINE [Concomitant]
     Active Substance: POVIDONE-IODINE
     Indication: Product used for unknown indication

REACTIONS (2)
  - Ocular discomfort [Unknown]
  - Panophthalmitis [Unknown]

NARRATIVE: CASE EVENT DATE: 20210310
